FAERS Safety Report 7831005-6 (Version None)
Quarter: 2011Q4

REPORT INFORMATION
  Report Type: 
  Country: None (occurrence: None)
  Receive Date: 20111021
  Receipt Date: 20111018
  Transmission Date: 20120403
  Serious: Yes (Disabling)
  Sender: FDA-Public Use
  Company Number: US-PFIZER INC-2011218537

PATIENT
  Sex: Female

DRUGS (1)
  1. AMLODIPINE BESYLATE [Suspect]
     Indication: HYPERTENSION
     Dosage: UNK
     Dates: start: 20100101, end: 20110301

REACTIONS (4)
  - GINGIVAL SWELLING [None]
  - GINGIVAL INFECTION [None]
  - GINGIVITIS [None]
  - TOOTH DISORDER [None]
